FAERS Safety Report 6478504-X (Version None)
Quarter: 2009Q4

REPORT INFORMATION
  Report Type: 
  Country: None (occurrence: None)
  Receive Date: 20091207
  Receipt Date: 20091203
  Transmission Date: 20100525
  Serious: Yes (Other)
  Sender: FDA-Public Use
  Company Number: MY-ROXANE LABORATORIES, INC.-2009-RO-01210RO

PATIENT
  Age: 10 Year
  Sex: Male

DRUGS (9)
  1. METHOTREXATE [Suspect]
     Indication: B PRECURSOR TYPE ACUTE LEUKAEMIA
     Route: 037
  2. METHOTREXATE [Suspect]
     Route: 042
  3. PREDNISONE [Suspect]
     Indication: B PRECURSOR TYPE ACUTE LEUKAEMIA
  4. VINCRISTINE [Suspect]
     Indication: B PRECURSOR TYPE ACUTE LEUKAEMIA
  5. ELSPAR [Suspect]
     Indication: B PRECURSOR TYPE ACUTE LEUKAEMIA
  6. THIOGUANINE [Suspect]
     Indication: B PRECURSOR TYPE ACUTE LEUKAEMIA
     Route: 048
  7. CYTARABINE [Suspect]
     Indication: B PRECURSOR TYPE ACUTE LEUKAEMIA
     Route: 058
  8. FOLINIC ACID [Concomitant]
     Indication: NEUROTOXICITY
     Route: 042
  9. FOLINIC ACID [Concomitant]
     Route: 042

REACTIONS (3)
  - LEUKAEMIA RECURRENT [None]
  - LEUKOENCEPHALOPATHY [None]
  - NEUROTOXICITY [None]
